FAERS Safety Report 7757453-0 (Version None)
Quarter: 2011Q3

REPORT INFORMATION
  Report Type: 
  Country: None (occurrence: None)
  Receive Date: 20110916
  Receipt Date: 20110912
  Transmission Date: 20111222
  Serious: Yes (Other)
  Sender: FDA-Public Use
  Company Number: US-ABBOTT-11P-163-0854403-00

PATIENT
  Sex: Female
  Weight: 113.5 kg

DRUGS (4)
  1. FOLIC ACID [Concomitant]
     Indication: PRODUCT USED FOR UNKNOWN INDICATION
  2. METHOTREXATE [Concomitant]
     Indication: PRODUCT USED FOR UNKNOWN INDICATION
  3. HUMIRA [Suspect]
     Indication: RHEUMATOID ARTHRITIS
     Dates: start: 20070101, end: 20110601
  4. HUMIRA [Suspect]
     Dates: start: 20110907

REACTIONS (11)
  - DYSPNOEA [None]
  - OESOPHAGEAL STENOSIS [None]
  - ERYTHEMA [None]
  - HEADACHE [None]
  - CHEST DISCOMFORT [None]
  - EAR INFECTION [None]
  - PHARYNGITIS [None]
  - OROPHARYNGEAL PAIN [None]
  - DYSPHAGIA [None]
  - EXTERNAL EAR INFLAMMATION [None]
  - OESOPHAGEAL OBSTRUCTION [None]
